FAERS Safety Report 16625057 (Version 1)
Quarter: 2019Q3

REPORT INFORMATION
  Report Type: Spontaneous
  Country: US (occurrence: US)
  Receive Date: 20190611
  Receipt Date: 20190611
  Transmission Date: 20191004
  Serious: Yes (Other)
  Sender: FDA-Public Use
  Company Number: None

PATIENT
  Sex: Female

DRUGS (2)
  1. CEFTRIAXONE SODIUM 2GM [Suspect]
     Active Substance: CEFTRIAXONE SODIUM
     Indication: INFECTION
  2. CEFTRIAXONE SODIUM 2GM [Suspect]
     Active Substance: CEFTRIAXONE SODIUM
     Indication: VENTRICULAR SEPTAL DEFECT
     Route: 042
     Dates: start: 20190521

REACTIONS (5)
  - Rash macular [None]
  - Pyrexia [None]
  - Ear pruritus [None]
  - Pruritus [None]
  - Hypotension [None]
